FAERS Safety Report 23972179 (Version 2)
Quarter: 2024Q2

REPORT INFORMATION
  Report Type: Spontaneous
  Country: ES (occurrence: ES)
  Receive Date: 20240613
  Receipt Date: 20240621
  Transmission Date: 20240716
  Serious: Yes (Other)
  Sender: FDA-Public Use
  Company Number: ES-PFIZER INC-2015475861

PATIENT
  Age: 58 Year
  Sex: Female

DRUGS (1)
  1. MITOXANTRONE HYDROCHLORIDE [Suspect]
     Active Substance: MITOXANTRONE HYDROCHLORIDE
     Indication: Metastasis
     Dosage: 10 MG/M2, DAILY

REACTIONS (3)
  - Osteonecrosis of jaw [Not Recovered/Not Resolved]
  - Diarrhoea [Unknown]
  - Stomatitis [Not Recovered/Not Resolved]
